FAERS Safety Report 9436616 (Version 1)
Quarter: 2013Q3

REPORT INFORMATION
  Report Type: Spontaneous
  Country: US (occurrence: None)
  Receive Date: 20130801
  Receipt Date: 20130801
  Transmission Date: 20140515
  Serious: Yes (Hospitalization)
  Sender: FDA-Public Use
  Company Number: None

PATIENT
  Age: 76 Year
  Sex: Female
  Weight: 76 kg

DRUGS (9)
  1. ZOSYN [Suspect]
     Indication: PNEUMONIA
  2. ASPIRIN [Concomitant]
  3. CLOPIDOGREL [Concomitant]
  4. COLACE [Concomitant]
  5. HEPARIN [Concomitant]
  6. INSULIN [Concomitant]
  7. ISOSORBID MONITRATE [Concomitant]
  8. PANTOPRAZOLE [Concomitant]
  9. RAMIPRIL [Concomitant]

REACTIONS (4)
  - Wheezing [None]
  - Lip swelling [None]
  - Throat tightness [None]
  - Rash maculo-papular [None]
